FAERS Safety Report 21617449 (Version 2)
Quarter: 2023Q1

REPORT INFORMATION
  Report Type: Report from Study
  Country: US (occurrence: US)
  Receive Date: 20221119
  Receipt Date: 20230201
  Transmission Date: 20230417
  Serious: No
  Sender: FDA-Public Use
  Company Number: US-ABBVIE-4158063

PATIENT
  Sex: Female

DRUGS (1)
  1. HUMIRA [Suspect]
     Active Substance: ADALIMUMAB
     Indication: Hidradenitis
     Dosage: 40MG?CF
     Route: 058
     Dates: start: 20220906

REACTIONS (5)
  - Migraine [Recovered/Resolved with Sequelae]
  - Gastrointestinal disorder [Not Recovered/Not Resolved]
  - Fatigue [Recovered/Resolved with Sequelae]
  - Speech disorder [Recovered/Resolved with Sequelae]
  - Mood swings [Recovered/Resolved with Sequelae]
